FAERS Safety Report 12524115 (Version 1)
Quarter: 2016Q3

REPORT INFORMATION
  Report Type: Spontaneous
  Country: US (occurrence: US)
  Receive Date: 20160704
  Receipt Date: 20160704
  Transmission Date: 20161109
  Serious: Yes (Other)
  Sender: FDA-Public Use
  Company Number: US-ACCORD-041992

PATIENT
  Age: 39 Year
  Sex: Female

DRUGS (9)
  1. CALCIUM CARBONATE. [Suspect]
     Active Substance: CALCIUM CARBONATE
     Indication: PRODUCT USED FOR UNKNOWN INDICATION
     Dosage: CHEWABLE FORM
     Route: 048
  2. LAMOTRIGINE. [Concomitant]
     Active Substance: LAMOTRIGINE
     Indication: HEMIPLEGIC MIGRAINE
  3. MEMANTINE HYDROCHLORIDE. [Concomitant]
     Active Substance: MEMANTINE HYDROCHLORIDE
     Indication: HEMIPLEGIC MIGRAINE
  4. GABAPENTIN. [Concomitant]
     Active Substance: GABAPENTIN
     Indication: HEMIPLEGIC MIGRAINE
  5. TOPIRAMATE. [Suspect]
     Active Substance: TOPIRAMATE
     Indication: HEMIPLEGIC MIGRAINE
     Dosage: DOSE: FLUCTUATED INITIAL DOSE OF 25 MG TO 100 MG TWICE DAILY. ALSO RECEIVED 50 MG DAILY.
  6. MECLIZINE [Suspect]
     Active Substance: MECLIZINE HYDROCHLORIDE
     Indication: VOMITING
     Dosage: DOSE: 25 MG DAILY AS NEEDED
  7. VERAPAMIL [Concomitant]
     Active Substance: VERAPAMIL HYDROCHLORIDE
     Indication: HEMIPLEGIC MIGRAINE
  8. AMITRIPTYLINE [Concomitant]
     Active Substance: AMITRIPTYLINE
     Indication: HEMIPLEGIC MIGRAINE
  9. CITALOPRAM [Concomitant]
     Active Substance: CITALOPRAM HYDROBROMIDE
     Indication: HEMIPLEGIC MIGRAINE

REACTIONS (11)
  - Salivary gland calculus [Recovered/Resolved]
  - Off label use [Unknown]
  - Sialoadenitis [Unknown]
  - Memory impairment [Unknown]
  - Disturbance in attention [Unknown]
  - Dysgeusia [Unknown]
  - Weight decreased [Unknown]
  - Paraesthesia [Unknown]
  - Gastrooesophageal reflux disease [Recovered/Resolved]
  - Urine abnormality [Recovered/Resolved]
  - Decreased appetite [Unknown]
